FAERS Safety Report 9971654 (Version 1)
Quarter: 2014Q1

REPORT INFORMATION
  Report Type: Report from Study
  Country: US (occurrence: US)
  Receive Date: 20140306
  Receipt Date: 20140306
  Transmission Date: 20141002
  Serious: No
  Sender: FDA-Public Use
  Company Number: US-ABBVIE-13P-163-1150470-00

PATIENT
  Age: 61 Year
  Sex: Male

DRUGS (8)
  1. HUMIRA [Suspect]
     Indication: CROHN^S DISEASE
     Dates: start: 201210
  2. ASACOL [Concomitant]
     Indication: CROHN^S DISEASE
  3. PRILOSEC [Concomitant]
     Indication: GASTROOESOPHAGEAL REFLUX DISEASE
     Dosage: 20 MG DAILY
  4. TOPAMAX [Concomitant]
     Indication: MIGRAINE
  5. EFFEXOR [Concomitant]
     Indication: DEPRESSION
  6. DIOVAN [Concomitant]
     Indication: BLOOD PRESSURE
  7. LUNESTA [Concomitant]
     Indication: INSOMNIA
     Dosage: AT BEDTIME
  8. LUNESTA [Concomitant]
     Indication: INSOMNIA

REACTIONS (2)
  - Restless legs syndrome [Recovering/Resolving]
  - Urinary tract infection [Recovering/Resolving]
